FAERS Safety Report 9189496 (Version 1)
Quarter: 2013Q1

REPORT INFORMATION
  Report Type: Spontaneous
  Country: US (occurrence: None)
  Receive Date: 20130322
  Receipt Date: 20130322
  Transmission Date: 20140127
  Serious: Yes (Hospitalization, Other)
  Sender: FDA-Public Use
  Company Number: None

PATIENT
  Sex: Female
  Weight: 86.18 kg

DRUGS (5)
  1. TRAMADOL [Suspect]
     Indication: CHEST PAIN
     Dates: start: 200809, end: 20081219
  2. SKELAXIN [Suspect]
     Indication: RASH
     Dates: start: 200809, end: 20081219
  3. SKELAXIN [Suspect]
     Indication: OCULAR ICTERUS
     Dates: start: 200809, end: 20081219
  4. SKELAXIN [Suspect]
     Indication: OROPHARYNGEAL PAIN
     Dates: start: 200809, end: 20081219
  5. CYCLOBENAZODINE [Concomitant]

REACTIONS (14)
  - Mood altered [None]
  - Coordination abnormal [None]
  - Heart rate increased [None]
  - Muscle twitching [None]
  - Pruritus [None]
  - Depression [None]
  - Constipation [None]
  - Dizziness [None]
  - Headache [None]
  - Asthenia [None]
  - Tremor [None]
  - Abdominal pain [None]
  - Visual impairment [None]
  - VIIth nerve paralysis [None]
